FAERS Safety Report 10884273 (Version 2)
Quarter: 2015Q1

REPORT INFORMATION
  Report Type: Spontaneous
  Country: ES (occurrence: None)
  Receive Date: 20150227
  Receipt Date: 20150309
  Transmission Date: 20150721
  Serious: Yes (Other)
  Sender: FDA-Public Use
  Company Number: 2015ES001625

PATIENT
  Sex: Male

DRUGS (1)
  1. ELIGARD [Suspect]
     Active Substance: LEUPROLIDE ACETATE
     Indication: PROSTATE CANCER METASTATIC
     Dosage: BIANNUALLY
     Route: 058
     Dates: start: 201411, end: 201411

REACTIONS (6)
  - Blood testosterone increased [None]
  - Prostatic specific antigen increased [None]
  - Medication error [None]
  - Wrong technique in drug usage process [None]
  - Extra dose administered [None]
  - No therapeutic response [None]
